FAERS Safety Report 21543484 (Version 2)
Quarter: 2022Q4

REPORT INFORMATION
  Report Type: Spontaneous
  Country: KR (occurrence: KR)
  Receive Date: 20221102
  Receipt Date: 20221128
  Transmission Date: 20230113
  Serious: Yes (Hospitalization)
  Sender: FDA-Public Use
  Company Number: KR-MYLANLABS-2022M1119626

PATIENT
  Age: 77 Year
  Sex: Male

DRUGS (3)
  1. LYRICA [Suspect]
     Active Substance: PREGABALIN
     Indication: Plasma cell myeloma
     Dosage: 46.71 MILLIGRAM, BIWEEKLY
     Route: 065
     Dates: start: 20190320
  2. VALACYCLOVIR HYDROCHLORIDE MONOHYDRATE [Concomitant]
     Active Substance: VALACYCLOVIR HYDROCHLORIDE MONOHYDRATE
     Indication: Plasma cell myeloma
     Dosage: 7 DOSAGE FORM, QD
     Route: 065
     Dates: start: 20190320
  3. DULOXETINE HYDROCHLORIDE [Concomitant]
     Active Substance: DULOXETINE HYDROCHLORIDE
     Dosage: UNK
     Route: 065

REACTIONS (2)
  - Febrile neutropenia [Recovered/Resolved]
  - Off label use [Unknown]

NARRATIVE: CASE EVENT DATE: 20190320
